FAERS Safety Report 15590364 (Version 2)
Quarter: 2019Q4

REPORT INFORMATION
  Report Type: Spontaneous
  Country: US (occurrence: US)
  Receive Date: 20181106
  Receipt Date: 20191111
  Transmission Date: 20200122
  Serious: No
  Sender: FDA-Public Use
  Company Number: US-PFIZER INC-2017383465

PATIENT
  Age: 63 Year
  Sex: Female

DRUGS (1)
  1. IBRANCE [Suspect]
     Active Substance: PALBOCICLIB
     Indication: BREAST CANCER FEMALE
     Dosage: 100 MG, CYCLIC, (1ONCE DAILY 21 DAYS OF A 28 DAY CYCLE)
     Route: 048
     Dates: start: 20170101

REACTIONS (3)
  - Fatigue [Unknown]
  - Product dose omission [Unknown]
  - Nausea [Unknown]
